FAERS Safety Report 14163379 (Version 1)
Quarter: 2017Q4

REPORT INFORMATION
  Report Type: Spontaneous
  Country: US (occurrence: US)
  Receive Date: 20171106
  Receipt Date: 20171106
  Transmission Date: 20180321
  Serious: Yes (Hospitalization)
  Sender: FDA-Public Use
  Company Number: US-BAYER-2017-213682

PATIENT
  Sex: Male

DRUGS (1)
  1. GADAVIST [Suspect]
     Active Substance: GADOBUTROL
     Indication: IMAGING PROCEDURE
     Dosage: UNK, ONCE
     Dates: start: 201710

REACTIONS (3)
  - Seizure [None]
  - Bronchial disorder [None]
  - Asthma [None]

NARRATIVE: CASE EVENT DATE: 201710
